FAERS Safety Report 23986165 (Version 6)
Quarter: 2025Q1

REPORT INFORMATION
  Report Type: Spontaneous
  Country: GB (occurrence: GB)
  Receive Date: 20240618
  Receipt Date: 20250116
  Transmission Date: 20250409
  Serious: No
  Sender: PFIZER
  Company Number: GB-PFIZER INC-202400191972

PATIENT

DRUGS (1)
  1. GENOTROPIN [Suspect]
     Active Substance: SOMATROPIN

REACTIONS (5)
  - Wrong technique in device usage process [Unknown]
  - Device use issue [Unknown]
  - Accidental exposure to product [Unknown]
  - Exposure via skin contact [Unknown]
  - Device leakage [Unknown]
